FAERS Safety Report 5469818-0 (Version None)
Quarter: 2007Q3

REPORT INFORMATION
  Report Type: 
  Country: None (occurrence: None)
  Receive Date: 20070927
  Receipt Date: 20070816
  Transmission Date: 20080115
  Serious: Yes (Hospitalization, Disabling, Other)
  Sender: FDA-Public Use
  Company Number: US-BRISTOL-MYERS SQUIBB COMPANY-13612510

PATIENT
  Age: 62 Year
  Sex: Female

DRUGS (10)
  1. SPRYCEL [Suspect]
     Indication: CHRONIC MYELOID LEUKAEMIA
     Dosage: THE DOSE OF DASATINIB WAS INCREASED TO 70 MG, BUT WHEN IS NOT SPECIFIED.
     Route: 048
  2. TOPROL-XL [Concomitant]
  3. LASIX [Concomitant]
  4. SINGULAIR [Concomitant]
  5. FLONASE [Concomitant]
     Route: 045
  6. ALBUTEROL [Concomitant]
     Dosage: 1 DOSAGE FORM = 2 PUFFS
  7. LEXAPRO [Concomitant]
  8. CELEBREX [Concomitant]
  9. NEURONTIN [Concomitant]
     Indication: NEUROPATHY PERIPHERAL
  10. KEPPRA [Concomitant]
     Dosage: A TOTAL OF 5 DOSES.

REACTIONS (3)
  - CONVULSION [None]
  - FLUID RETENTION [None]
  - HERPES ZOSTER [None]
